FAERS Safety Report 16244000 (Version 1)
Quarter: 2019Q2

REPORT INFORMATION
  Report Type: Spontaneous
  Country: FR (occurrence: FR)
  Receive Date: 20190426
  Receipt Date: 20190426
  Transmission Date: 20190711
  Serious: Yes (Other)
  Sender: FDA-Public Use
  Company Number: FR-MYLANLABS-2019M1037886

PATIENT
  Age: 52 Year
  Sex: Female
  Weight: 58 kg

DRUGS (8)
  1. XYLOCAINE [Suspect]
     Active Substance: LIDOCAINE HYDROCHLORIDE
     Indication: MUCOSAL INFLAMMATION
     Dosage: 4 DOSAGE FORM, QD
     Route: 048
     Dates: start: 20170727, end: 20170731
  2. FLUCONAZOLE KABI [Suspect]
     Active Substance: FLUCONAZOLE
     Indication: MUCOSAL INFLAMMATION
     Dosage: 400 MILLIGRAM, QD
     Route: 042
     Dates: start: 20170725, end: 20170730
  3. ALPRAZOLAM MYLAN 0.25 MG, COMPRIM? S?CABLE [Suspect]
     Active Substance: ALPRAZOLAM
     Indication: ANXIETY
     Dosage: 1 DOSAGE FORM, QD
     Route: 048
     Dates: start: 20170719, end: 20170729
  4. GRANOCYTE [Concomitant]
     Active Substance: LENOGRASTIM
  5. PIPERACILLIN AND TAZOBACTAM [Suspect]
     Active Substance: PIPERACILLIN SODIUM\TAZOBACTAM SODIUM
     Indication: SEPSIS
     Dosage: 1 DOSAGE FORM, QD
     Route: 041
     Dates: start: 20170728, end: 20180729
  6. NEFOPAM MYLAN 20 MG/2 ML, SOLUTION INJECTABLE [Suspect]
     Active Substance: NEFOPAM HYDROCHLORIDE
     Indication: PAIN
     Dosage: 1 DOSAGE FORM, QD
     Route: 042
     Dates: start: 20170727, end: 20170729
  7. INNOHEP [Concomitant]
     Active Substance: TINZAPARIN SODIUM
  8. ZELITREX [Concomitant]
     Active Substance: VALACYCLOVIR HYDROCHLORIDE

REACTIONS (2)
  - Rash maculo-papular [Recovered/Resolved]
  - Face oedema [Recovered/Resolved]

NARRATIVE: CASE EVENT DATE: 20170729
